FAERS Safety Report 11549296 (Version 1)
Quarter: 2015Q3

REPORT INFORMATION
  Report Type: Spontaneous
  Country: US (occurrence: US)
  Receive Date: 20150903
  Receipt Date: 20150903
  Transmission Date: 20151125
  Serious: No
  Sender: FDA-Public Use
  Company Number: US-ELI_LILLY_AND_COMPANY-US201303000977

PATIENT
  Age: 42 Year
  Sex: Female

DRUGS (2)
  1. HUMALOG [Suspect]
     Active Substance: INSULIN LISPRO
     Indication: TYPE 1 DIABETES MELLITUS
     Dosage: UNK
     Dates: start: 1999
  2. HUMALOG [Suspect]
     Active Substance: INSULIN LISPRO
     Dosage: 28 U, UNK
     Route: 058
     Dates: end: 20130301

REACTIONS (5)
  - Eye swelling [Not Recovered/Not Resolved]
  - Rash generalised [Not Recovered/Not Resolved]
  - Lip swelling [Not Recovered/Not Resolved]
  - Pruritus [Not Recovered/Not Resolved]
  - Urticaria [Not Recovered/Not Resolved]

NARRATIVE: CASE EVENT DATE: 20130223
